FAERS Safety Report 20670548 (Version 6)
Quarter: 2024Q4

REPORT INFORMATION
  Report Type: Report from Study
  Country: PA (occurrence: PA)
  Receive Date: 20220404
  Receipt Date: 20241030
  Transmission Date: 20250114
  Serious: Yes (Other)
  Sender: NOVARTIS
  Company Number: PA-NOVARTISPH-NVSC2022PA070734

PATIENT
  Sex: Female

DRUGS (5)
  1. KISQALI [Suspect]
     Active Substance: RIBOCICLIB
     Indication: Breast cancer metastatic
     Dosage: 600 MG, QD
     Route: 048
     Dates: start: 202007
  2. KISQALI [Suspect]
     Active Substance: RIBOCICLIB
     Dosage: 400 MG, QD
     Route: 048
     Dates: start: 202007, end: 202410
  3. KISQALI [Suspect]
     Active Substance: RIBOCICLIB
     Dosage: 3 DOSAGE FORM, QD
     Route: 065
     Dates: start: 2020, end: 2021
  4. KISQALI [Suspect]
     Active Substance: RIBOCICLIB
     Dosage: 2 DOSAGE FORM, QD (TABLETS)
     Route: 065
     Dates: start: 2021
  5. FULVESTRANT [Suspect]
     Active Substance: FULVESTRANT
     Indication: Product used for unknown indication
     Dosage: UNK
     Route: 065

REACTIONS (10)
  - Metastases to bone [Unknown]
  - Arrhythmia [Unknown]
  - Heart rate abnormal [Unknown]
  - Hypertension [Unknown]
  - Decreased immune responsiveness [Unknown]
  - Insomnia [Unknown]
  - Eating disorder [Unknown]
  - Tumour marker increased [Unknown]
  - Product availability issue [Unknown]
  - Drug intolerance [Unknown]
